FAERS Safety Report 14732486 (Version 2)
Quarter: 2018Q2

REPORT INFORMATION
  Report Type: Spontaneous
  Country: US (occurrence: US)
  Receive Date: 20180409
  Receipt Date: 20180611
  Transmission Date: 20180711
  Serious: Yes (Hospitalization, Other)
  Sender: FDA-Public Use
  Company Number: US-ZYDUS-019655

PATIENT
  Sex: Female
  Weight: 2.65 kg

DRUGS (5)
  1. DIGOXIN. [Concomitant]
     Active Substance: DIGOXIN
     Indication: JUNCTIONAL ECTOPIC TACHYCARDIA
     Route: 064
  2. SOTALOL. [Suspect]
     Active Substance: SOTALOL
     Indication: JUNCTIONAL ECTOPIC TACHYCARDIA
     Dosage: MAXIMUM DOSE 480 MG/DAY
     Route: 064
  3. SOTALOL. [Suspect]
     Active Substance: SOTALOL
     Indication: JUNCTIONAL ECTOPIC TACHYCARDIA
     Dosage: MAXIMUM DOSE 480 MG/DAY
     Route: 064
  4. AMIODARONE [Suspect]
     Active Substance: AMIODARONE
     Indication: JUNCTIONAL ECTOPIC TACHYCARDIA
     Route: 064
  5. AMIODARONE [Suspect]
     Active Substance: AMIODARONE
     Indication: JUNCTIONAL ECTOPIC TACHYCARDIA
     Route: 064

REACTIONS (4)
  - Bundle branch block left [Recovered/Resolved]
  - Electrocardiogram QRS complex prolonged [Recovered/Resolved]
  - Foetal exposure during pregnancy [Unknown]
  - Atrioventricular block [Recovered/Resolved]
